FAERS Safety Report 6908652-9 (Version None)
Quarter: 2010Q3

REPORT INFORMATION
  Report Type: 
  Country: None (occurrence: None)
  Receive Date: 20100805
  Receipt Date: 20100803
  Transmission Date: 20110219
  Serious: Yes (Hospitalization)
  Sender: FDA-Public Use
  Company Number: US-PFIZER INC-2010067446

PATIENT
  Sex: Female
  Weight: 89.72 kg

DRUGS (8)
  1. DILANTIN-125 [Suspect]
     Dosage: UNK
     Dates: end: 20100314
  2. MS CONTIN [Suspect]
     Dosage: 45 MG, 2X/DAY
     Route: 048
     Dates: start: 20100129
  3. REMERON [Suspect]
     Dosage: 50 MG, AS NEEDED AT BED TIME
     Route: 048
     Dates: start: 20100129
  4. KEPPRA [Suspect]
     Dosage: 1500 MG, 2X/DAY
     Route: 048
  5. ADVAIR DISKUS 100/50 [Suspect]
     Dosage: UNK, AS REQUIRED
     Dates: start: 20100127
  6. ALBUTEROL [Suspect]
     Dosage: UNK, 3X/DAY
     Dates: start: 20100129
  7. SPIRIVA [Suspect]
     Dosage: 1 PUFF DAILY
     Dates: start: 20100129
  8. DECADRON [Suspect]
     Dosage: 4 MG, 2X/DAY
     Route: 048
     Dates: start: 20100129

REACTIONS (1)
  - PULMONARY EMBOLISM [None]
